FAERS Safety Report 20937397 (Version 1)
Quarter: 2022Q2

REPORT INFORMATION
  Report Type: Spontaneous
  Country: US (occurrence: None)
  Receive Date: 20220608
  Receipt Date: 20220608
  Transmission Date: 20220720
  Serious: Yes (Hospitalization)
  Sender: FDA-Public Use
  Company Number: None

PATIENT
  Sex: Male
  Weight: 90.6 kg

DRUGS (3)
  1. BLEOMYCIN [Suspect]
     Active Substance: BLEOMYCIN SULFATE
     Dates: end: 20220524
  2. CARBOPLATIN [Suspect]
     Active Substance: CARBOPLATIN
     Dates: end: 20220516
  3. ETOPOSIDE [Suspect]
     Active Substance: ETOPOSIDE

REACTIONS (5)
  - Pyrexia [None]
  - Headache [None]
  - Neutropenia [None]
  - Enterovirus test positive [None]
  - Rhinovirus infection [None]

NARRATIVE: CASE EVENT DATE: 20220524
